FAERS Safety Report 6290632-0 (Version None)
Quarter: 2009Q3

REPORT INFORMATION
  Report Type: 
  Country: None (occurrence: None)
  Receive Date: 20090730
  Receipt Date: 20090720
  Transmission Date: 20100115
  Serious: Yes (Other)
  Sender: FDA-Public Use
  Company Number: PHHY2009BR30710

PATIENT
  Sex: Male
  Weight: 70 kg

DRUGS (1)
  1. DIOVAN [Suspect]
     Indication: HYPERTENSION
     Dosage: 80 MG, QD
     Route: 048
     Dates: start: 20030101

REACTIONS (6)
  - BLOOD PRESSURE FLUCTUATION [None]
  - FOOD ALLERGY [None]
  - GOUT [None]
  - IRRITABILITY [None]
  - MUSCULOSKELETAL STIFFNESS [None]
  - TORTICOLLIS [None]
